FAERS Safety Report 25034964 (Version 1)
Quarter: 2025Q1

REPORT INFORMATION
  Report Type: Spontaneous
  Country: SE (occurrence: SE)
  Receive Date: 20250304
  Receipt Date: 20250304
  Transmission Date: 20250409
  Serious: Yes (Other)
  Sender: CHEPLAPHARM
  Company Number: SE-CHEPLA-2025002621

PATIENT
  Age: 66 Year
  Sex: Male

DRUGS (1)
  1. HYDROXYUREA [Suspect]
     Active Substance: HYDROXYUREA
     Indication: Essential thrombocythaemia
     Dates: end: 20240213

REACTIONS (2)
  - Pain in extremity [Unknown]
  - Toe amputation [Unknown]

NARRATIVE: CASE EVENT DATE: 20240122
